FAERS Safety Report 4282827-2 (Version None)
Quarter: 2004Q1

REPORT INFORMATION
  Report Type: 
  Country: None (occurrence: None)
  Receive Date: 20040130
  Receipt Date: 20030502
  Transmission Date: 20041129
  Serious: No
  Sender: FDA-Public Use
  Company Number: US-BRISTOL-MYERS SQUIBB COMPANY-12262200

PATIENT
  Age: 58 Year
  Sex: Female
  Weight: 77 kg

DRUGS (9)
  1. SERZONE [Suspect]
     Indication: DEPRESSION
     Dosage: STARTED SERZONE 100MG DAILY FOR 1 YEAR PRIOR TO JAN-03,THEN INCREASED TO 150MG DAILY ON JAN-2003
     Route: 048
     Dates: start: 20020101
  2. SERZONE [Interacting]
     Indication: ANXIETY
     Dosage: STARTED SERZONE 100MG DAILY FOR 1 YEAR PRIOR TO JAN-03,THEN INCREASED TO 150MG DAILY ON JAN-2003
     Route: 048
     Dates: start: 20020101
  3. ANTIVERT [Interacting]
     Indication: DIZZINESS
     Dosage: TOOK 2 TABS ON 29-APR-03, THEN TOOK 1 TAB IN AM AND 1 TAB AT NITE ON 30-APR-2003
     Dates: start: 20030429
  4. ATROVENT [Concomitant]
     Indication: ASTHMA
  5. SEREVENT [Concomitant]
     Indication: ASTHMA
  6. ACCOLATE [Concomitant]
     Indication: ASTHMA
  7. VANCERIL [Concomitant]
     Indication: ASTHMA
  8. PROVENTIL [Concomitant]
     Indication: ASTHMA
  9. VIOXX [Concomitant]

REACTIONS (5)
  - BLOOD CHOLESTEROL INCREASED [None]
  - DIZZINESS [None]
  - FATIGUE [None]
  - STUPOR [None]
  - WEIGHT INCREASED [None]
